FAERS Safety Report 4740595-1 (Version None)
Quarter: 2005Q3

REPORT INFORMATION
  Report Type: 
  Country: None (occurrence: None)
  Receive Date: 20050810
  Receipt Date: 20050601
  Transmission Date: 20060218
  Serious: Yes (Other)
  Sender: FDA-Public Use
  Company Number: 2005CG01032

PATIENT
  Age: 24863 Day
  Sex: Female
  Weight: 48 kg

DRUGS (2)
  1. NOLVADEX [Suspect]
     Indication: BREAST CANCER
     Route: 048
     Dates: start: 20010710
  2. NOVATREX [Suspect]
     Indication: RHEUMATOID ARTHRITIS
     Dates: start: 19960101

REACTIONS (1)
  - ARTERIAL THROMBOSIS LIMB [None]
